FAERS Safety Report 18694472 (Version 1)
Quarter: 2020Q4

REPORT INFORMATION
  Report Type: Spontaneous
  Country: US (occurrence: US)
  Receive Date: 20201230
  Receipt Date: 20201230
  Transmission Date: 20210114
  Serious: Yes (Other)
  Sender: FDA-Public Use
  Company Number: None

PATIENT
  Age: 60 Year
  Sex: Female
  Weight: 43.55 kg

DRUGS (1)
  1. RECLAST [Suspect]
     Active Substance: ZOLEDRONIC ACID
     Indication: OSTEOPOROSIS
     Dates: start: 20200821, end: 20200821

REACTIONS (3)
  - General physical health deterioration [None]
  - Incorrect dose administered [None]
  - Incorrect product administration duration [None]

NARRATIVE: CASE EVENT DATE: 20200821
